FAERS Safety Report 24766496 (Version 2)
Quarter: 2024Q4

REPORT INFORMATION
  Report Type: Spontaneous
  Country: CH (occurrence: CH)
  Receive Date: 20241223
  Receipt Date: 20241224
  Transmission Date: 20250115
  Serious: Yes (Other)
  Sender: NOVARTIS
  Company Number: CH-002147023-NVSC2024CH241509

PATIENT
  Age: 60 Year

DRUGS (1)
  1. INCLISIRAN [Suspect]
     Active Substance: INCLISIRAN
     Indication: Product used for unknown indication
     Dosage: UNK (ONE INJECTION)
     Route: 065

REACTIONS (3)
  - Haemolytic anaemia [Unknown]
  - Haemoglobin decreased [Unknown]
  - Glomerular filtration rate decreased [Recovered/Resolved]
